FAERS Safety Report 5276250-1 (Version None)
Quarter: 2007Q1

REPORT INFORMATION
  Report Type: 
  Country: None (occurrence: None)
  Receive Date: 20070321
  Receipt Date: 20070103
  Transmission Date: 20070707
  Serious: Yes (Death)
  Sender: FDA-Public Use
  Company Number: 234915K06USA

PATIENT
  Age: 41 Year
  Sex: Male

DRUGS (10)
  1. REBIF [Suspect]
     Indication: MULTIPLE SCLEROSIS
     Dosage: 44 MCG, 3 IN 1 WEEKS, SUBCUTANEOUS
     Route: 058
     Dates: start: 20030610, end: 20051105
  2. NORVASC [Concomitant]
  3. ATENOLOL [Concomitant]
  4. ZOCOR [Concomitant]
  5. ACCOLATE [Concomitant]
  6. ALBUTEROL (SALBUTAMOL /00139501/) [Concomitant]
  7. WELLBUTRIN [Concomitant]
  8. DIAZEPAM [Concomitant]
  9. TRAZODONE HCL [Concomitant]
  10. LORTAB [Concomitant]

REACTIONS (2)
  - MUSCULAR WEAKNESS [None]
  - MYOCARDIAL INFARCTION [None]
